FAERS Safety Report 23859599 (Version 1)
Quarter: 2024Q2

REPORT INFORMATION
  Report Type: Spontaneous
  Country: US (occurrence: None)
  Receive Date: 20240515
  Receipt Date: 20240515
  Transmission Date: 20240715
  Serious: No
  Sender: FDA-Public Use
  Company Number: None

PATIENT
  Sex: 0

DRUGS (1)
  1. VIVITROL [Suspect]
     Active Substance: NALTREXONE

REACTIONS (4)
  - Injection site pain [None]
  - Arthralgia [None]
  - Sleep disorder [None]
  - Injection site pain [None]
